FAERS Safety Report 8000845 (Version 2)
Quarter: 2012Q4

REPORT INFORMATION
  Report Type: 
  Country: US (occurrence: US)
  Receive Date: 20110621
  Receipt Date: 20120910
  Transmission Date: 20130627
  Serious: Yes (Hospitalization, Other)
  Sender: FDA-Public Use
  Company Number: US-ASTRAZENECA-2011SE05347

PATIENT
  Age: 82 Year
  Sex: Female
  Weight: 53.1 kg

DRUGS (11)
  1. PULMICORT FLEXHALER [Suspect]
     Indication: ASTHMA
     Dosage: 180 MCG, 1 PUFF DAILY
     Route: 055
     Dates: start: 200706
  2. PULMICORT [Suspect]
     Indication: ASTHMA
     Dosage: 180 MCG, 1 PUFF BID
     Route: 055
     Dates: start: 201002, end: 201002
  3. PULMICORT [Suspect]
     Indication: ASTHMA
     Dosage: 180 MCG, 1 PUFF DAILY
     Route: 055
     Dates: start: 201002
  4. HYDROCODONE [Suspect]
     Indication: PAIN
     Route: 065
     Dates: start: 2008
  5. PLAVIX [Concomitant]
     Route: 048
     Dates: start: 2005, end: 201201
  6. NORVASC [Concomitant]
     Indication: HYPERTENSION
     Route: 048
  7. LISINOPRIL [Concomitant]
     Indication: HYPERTENSION
     Route: 048
  8. LIPITOR [Concomitant]
     Indication: BLOOD CHOLESTEROL INCREASED
     Route: 048
  9. ASA [Concomitant]
     Indication: ANTIPLATELET THERAPY
     Route: 048
     Dates: start: 2002
  10. MAGNESIUM OXIDE [Concomitant]
     Indication: HEART RATE ABNORMAL
     Route: 048
     Dates: start: 200908
  11. CLORCON [Concomitant]
     Indication: MINERAL SUPPLEMENTATION
     Route: 048

REACTIONS (18)
  - Gastroenteritis viral [Unknown]
  - Vomiting [Unknown]
  - Choking [Unknown]
  - Cardiac disorder [Recovered/Resolved]
  - Blood potassium decreased [Recovered/Resolved]
  - Diarrhoea [Unknown]
  - Fall [Recovered/Resolved]
  - Head injury [Recovered/Resolved]
  - Tooth fracture [Recovered/Resolved]
  - Adverse event [Recovered/Resolved]
  - Spinal column stenosis [Unknown]
  - Pain in extremity [Recovered/Resolved]
  - Electrolyte imbalance [Unknown]
  - Oedema [Not Recovered/Not Resolved]
  - Tongue pruritus [Unknown]
  - Asthma [Recovered/Resolved]
  - Bronchitis [Unknown]
  - Muscle strain [Unknown]
